FAERS Safety Report 14835537 (Version 2)
Quarter: 2018Q2

REPORT INFORMATION
  Report Type: Spontaneous
  Country: FR (occurrence: FR)
  Receive Date: 20180502
  Receipt Date: 20180509
  Transmission Date: 20180711
  Serious: Yes (Life-Threatening, Hospitalization, Other)
  Sender: FDA-Public Use
  Company Number: FR-AMGEN-FRASP2018058926

PATIENT
  Age: 72 Year
  Sex: Female

DRUGS (2)
  1. CALCIPARINE [Suspect]
     Active Substance: HEPARIN CALCIUM
     Indication: CEREBROVASCULAR ACCIDENT
     Dosage: 5000 IU, 2X/DAY
     Route: 058
     Dates: start: 20180302
  2. ENBREL [Suspect]
     Active Substance: ETANERCEPT
     Indication: PSORIASIS
     Dosage: 100 MG, WEEKLY
     Route: 058
     Dates: start: 20180221

REACTIONS (2)
  - Thrombocytopenia [Not Recovered/Not Resolved]
  - Ischaemic stroke [Recovering/Resolving]

NARRATIVE: CASE EVENT DATE: 20180226
